FAERS Safety Report 7984043-7 (Version None)
Quarter: 2011Q4

REPORT INFORMATION
  Report Type: 
  Country: None (occurrence: None)
  Receive Date: 20111216
  Receipt Date: 20111208
  Transmission Date: 20120403
  Serious: Yes (Other)
  Sender: FDA-Public Use
  Company Number: AU-PFIZER INC-2011300091

PATIENT
  Sex: Female

DRUGS (1)
  1. SIROLIMUS [Suspect]
     Dosage: UNK

REACTIONS (2)
  - HEPATIC FIBROSIS [None]
  - HEPATIC NECROSIS [None]
